FAERS Safety Report 5367948-5 (Version None)
Quarter: 2007Q2

REPORT INFORMATION
  Report Type: 
  Country: None (occurrence: None)
  Receive Date: 20070622
  Receipt Date: 20070614
  Transmission Date: 20071010
  Serious: Yes (Other)
  Sender: FDA-Public Use
  Company Number: FR-PFIZER INC-2007034419

PATIENT
  Sex: Male
  Weight: 75 kg

DRUGS (6)
  1. ATORVASTATIN CALCIUM [Suspect]
     Indication: HYPERCHOLESTEROLAEMIA
  2. PRAVASTATIN [Suspect]
  3. ASPIRIN [Concomitant]
     Dosage: DAILY DOSE:160MG-FREQ:DAILY
     Route: 048
     Dates: start: 20070212, end: 20070602
  4. DEROXAT [Concomitant]
     Dosage: DAILY DOSE:20MG-FREQ:DAILY
     Route: 048
  5. SPECIAFOLDINE [Concomitant]
     Dosage: FREQ:2 TABLETS DAILY IN 2 INTAKES
     Route: 048
  6. PLAVIX [Concomitant]
     Route: 048

REACTIONS (3)
  - CEREBROVASCULAR ACCIDENT [None]
  - MYALGIA [None]
  - PARAESTHESIA [None]
